FAERS Safety Report 5906654-2 (Version None)
Quarter: 2008Q3

REPORT INFORMATION
  Report Type: 
  Country: None (occurrence: None)
  Receive Date: 20080930
  Receipt Date: 20080919
  Transmission Date: 20090109
  Serious: No
  Sender: FDA-Public Use
  Company Number: 2008SP006923

PATIENT
  Age: 75 Year
  Sex: Female

DRUGS (10)
  1. CLARITIN [Suspect]
     Indication: HYPERSENSITIVITY
     Dosage: 10 MG; PO
     Route: 048
  2. HYPEN [Concomitant]
  3. MUCOSTA [Concomitant]
  4. EMPYNASE P [Concomitant]
  5. PROPIVERINE [Concomitant]
  6. ZANTAC [Concomitant]
  7. NORVASC [Concomitant]
  8. BLOPRESS [Concomitant]
  9. DIAZEPAM [Concomitant]
  10. PL GRAN. [Concomitant]

REACTIONS (2)
  - ECZEMA [None]
  - NASOPHARYNGITIS [None]
